FAERS Safety Report 4977490-9 (Version None)
Quarter: 2006Q2

REPORT INFORMATION
  Report Type: 
  Country: None (occurrence: None)
  Receive Date: 20060420
  Receipt Date: 20060103
  Transmission Date: 20061013
  Serious: Yes (Other)
  Sender: FDA-Public Use
  Company Number: GB-RB-2519-2006

PATIENT
  Sex: Female

DRUGS (4)
  1. BUPRENORPHINE HCL [Suspect]
     Indication: DETOXIFICATION
     Route: 060
     Dates: start: 20030101, end: 20040101
  2. BUPRENORPHINE HCL [Suspect]
     Route: 060
     Dates: start: 20051001, end: 20050101
  3. BUPRENORPHINE HCL [Suspect]
     Route: 060
     Dates: start: 20050101
  4. DOTHIEPIN HYDROCHLORIDE [Concomitant]
     Indication: DEPRESSION
     Dosage: DOSAGE UNKNOWN
     Route: 065

REACTIONS (4)
  - DEPENDENCE [None]
  - INTENTIONAL OVERDOSE [None]
  - RHINORRHOEA [None]
  - SUICIDE ATTEMPT [None]
